FAERS Safety Report 4502664-0 (Version None)
Quarter: 2004Q3

REPORT INFORMATION
  Report Type: 
  Country: None (occurrence: None)
  Receive Date: 20040928
  Receipt Date: 20040607
  Transmission Date: 20050211
  Serious: No
  Sender: FDA-Public Use
  Company Number: 04P-163-0263079-00

PATIENT
  Age: 69 Year
  Sex: Female
  Weight: 72.5755 kg

DRUGS (11)
  1. HUMIRA [Suspect]
     Indication: RHEUMATOID ARTHRITIS
     Dosage: 40 MG, 1 IN 2 WK, SUBCUTANEOUS
     Route: 058
     Dates: start: 20040501, end: 20040601
  2. HUMIRA [Suspect]
     Indication: RHEUMATOID ARTHRITIS
     Dosage: 40 MG, 1 IN 2 WK, SUBCUTANEOUS
     Route: 058
     Dates: start: 20040601
  3. ATENOLOL [Concomitant]
  4. HYZAAR [Concomitant]
  5. PIOGLITAZONE HCL [Concomitant]
  6. GLIPIZIDE [Concomitant]
  7. METFORMIN HCL [Concomitant]
  8. FEXOFENADINE HYDROCHLORIDE [Concomitant]
  9. ALPRAZOLAM [Concomitant]
  10. PANTHENOL [Concomitant]
  11. ROFECOXIB [Concomitant]

REACTIONS (1)
  - ACARODERMATITIS [None]
